FAERS Safety Report 8712815 (Version 2)
Quarter: 2012Q4

REPORT INFORMATION
  Report Type: Report from Study
  Country: JP (occurrence: JP)
  Receive Date: 20120808
  Receipt Date: 20121029
  Transmission Date: 20130627
  Serious: Yes (Hospitalization)
  Sender: FDA-Public Use
  Company Number: JP-BRISTOL-MYERS SQUIBB COMPANY-16829186

PATIENT
  Age: 69 Year
  Sex: Female

DRUGS (6)
  1. REYATAZ [Suspect]
     Indication: HIV INFECTION
     Route: 048
     Dates: start: 20050106, end: 20110530
  2. NORVIR [Suspect]
     Indication: HIV INFECTION
     Dosage: Caps.
06Jan05-26Ap2011,27Apr11 to 30May11
     Route: 048
     Dates: start: 20050106, end: 20110530
  3. VIREAD [Suspect]
     Indication: HIV INFECTION
     Route: 048
     Dates: start: 20050106, end: 20110530
  4. EPIVIR [Suspect]
     Indication: HIV INFECTION
     Dosage: tabs.
14DEc04 to 30Dec04:150mgx2
     Route: 048
     Dates: start: 20050106, end: 20110530
  5. BLOPRESS [Concomitant]
     Indication: HYPERTENSION
     Dosage: tabs
     Route: 048
     Dates: start: 20040401
  6. ZYRTEC [Concomitant]
     Indication: RHINITIS
     Dosage: Tabs
     Route: 048
     Dates: start: 20050906

REACTIONS (3)
  - Diarrhoea [Recovered/Resolved]
  - Dehydration [Recovered/Resolved]
  - Renal impairment [Recovered/Resolved]
